FAERS Safety Report 12492392 (Version 1)
Quarter: 2016Q2

REPORT INFORMATION
  Report Type: Spontaneous
  Country: US (occurrence: None)
  Receive Date: 20160622
  Receipt Date: 20160622
  Transmission Date: 20160815
  Serious: Yes (Hospitalization)
  Sender: FDA-Public Use
  Company Number: None

PATIENT
  Age: 35 Year
  Sex: Male
  Weight: 83.91 kg

DRUGS (9)
  1. SOFOSBUVIR 400MG GILEAD [Suspect]
     Active Substance: SOFOSBUVIR
     Indication: HEPATITIS C
     Dates: start: 20140310, end: 20140825
  2. ASPIRIN. [Concomitant]
     Active Substance: ASPIRIN
  3. LISINOPRIL. [Concomitant]
     Active Substance: LISINOPRIL
  4. ATENOLOL. [Concomitant]
     Active Substance: ATENOLOL
  5. OMEPRAZOLE. [Concomitant]
     Active Substance: OMEPRAZOLE
  6. GABAPENTIN. [Concomitant]
     Active Substance: GABAPENTIN
  7. IBUPROFEN. [Concomitant]
     Active Substance: IBUPROFEN
  8. TRAMADOL. [Concomitant]
     Active Substance: TRAMADOL
  9. RIBAVIRIN 1200MG [Suspect]
     Active Substance: RIBAVIRIN
     Indication: HEPATITIS C
     Dates: start: 20140310, end: 20140825

REACTIONS (8)
  - Drug dose omission [None]
  - Chest pain [None]
  - Tinnitus [None]
  - Dizziness exertional [None]
  - Chest discomfort [None]
  - Drug screen positive [None]
  - Hyperhidrosis [None]
  - Dyspnoea exertional [None]

NARRATIVE: CASE EVENT DATE: 20140429
